FAERS Safety Report 13155921 (Version 1)
Quarter: 2017Q1

REPORT INFORMATION
  Report Type: Spontaneous
  Country: US (occurrence: US)
  Receive Date: 20170126
  Receipt Date: 20170126
  Transmission Date: 20170428
  Serious: Yes (Other)
  Sender: FDA-Public Use
  Company Number: US-IMPAX LABORATORIES, INC-2016-IPXL-02543

PATIENT
  Age: 54 Year
  Sex: Female
  Weight: 63 kg

DRUGS (3)
  1. SINEMET [Concomitant]
     Active Substance: CARBIDOPA\LEVODOPA
     Indication: PARKINSON^S DISEASE
     Dosage: 25 MG/100 MG 3 CAPSULES
  2. RYTARY [Suspect]
     Active Substance: CARBIDOPA\LEVODOPA
     Indication: PARKINSON^S DISEASE
     Dosage: 48.75/195 MG, 4 CAPSULES THREE TIMES DAILY
     Route: 048
     Dates: start: 20161225, end: 20161228
  3. SINEMET [Concomitant]
     Active Substance: CARBIDOPA\LEVODOPA
     Dosage: 25 MG/100 MG 3 CAPSULES AT 7 AM
     Route: 048
     Dates: start: 20161228

REACTIONS (12)
  - Pain in jaw [Recovered/Resolved]
  - Muscle contractions involuntary [Recovered/Resolved]
  - Neck pain [Recovered/Resolved]
  - Frustration tolerance decreased [Recovered/Resolved]
  - Anxiety [Recovered/Resolved]
  - Joint stiffness [Recovered/Resolved]
  - Feeling jittery [Recovered/Resolved]
  - Hypersensitivity [Recovered/Resolved]
  - Oropharyngeal pain [Recovered/Resolved]
  - Insomnia [Recovered/Resolved]
  - Muscle spasms [Recovered/Resolved]
  - Headache [Recovered/Resolved]

NARRATIVE: CASE EVENT DATE: 20161226
